FAERS Safety Report 12312142 (Version 1)
Quarter: 2016Q2

REPORT INFORMATION
  Report Type: Spontaneous
  Country: US (occurrence: US)
  Receive Date: 20160427
  Receipt Date: 20160427
  Transmission Date: 20160815
  Serious: Yes (Death)
  Sender: FDA-Public Use
  Company Number: US-BAUSCH-BL-2016-009887

PATIENT
  Age: 65 Year
  Sex: Male

DRUGS (1)
  1. XENAZINE [Suspect]
     Active Substance: TETRABENAZINE
     Indication: HUNTINGTON^S DISEASE
     Route: 048
     Dates: start: 20100723, end: 20160416

REACTIONS (2)
  - Hospice care [Unknown]
  - Disease progression [Fatal]

NARRATIVE: CASE EVENT DATE: 20160416
